FAERS Safety Report 8333143-0 (Version None)
Quarter: 2012Q2

REPORT INFORMATION
  Report Type: 
  Country: None (occurrence: None)
  Receive Date: 20120503
  Receipt Date: 20120427
  Transmission Date: 20120825
  Serious: Yes (Other)
  Sender: FDA-Public Use
  Company Number: GB-PFIZER INC-2012104489

PATIENT
  Age: 33 Year
  Sex: Male
  Weight: 66 kg

DRUGS (3)
  1. METHADONE HCL [Concomitant]
     Dosage: 100 MG DAILY
     Route: 048
     Dates: start: 20100101
  2. GABAPENTIN [Suspect]
     Dosage: UNK
     Route: 048
  3. HEROIN [Concomitant]
     Dosage: UNK

REACTIONS (1)
  - DRUG ABUSE [None]
